FAERS Safety Report 3901579 (Version 3)
Quarter: 2016Q1

REPORT INFORMATION
  Report Type: Spontaneous
  Country: US (occurrence: US)
  Receive Date: 20030214
  Receipt Date: 20160202
  Transmission Date: 20160526
  Serious: No
  Sender: FDA-Public Use
  Company Number: US-BRISTOL-MYERS SQUIBB COMPANY-12014999

PATIENT
  Sex: Female

DRUGS (1)
  1. LYSODREN [Suspect]
     Active Substance: MITOTANE
     Indication: PRODUCT USED FOR UNKNOWN INDICATION
     Dosage: UNK
     Route: 048

REACTIONS (3)
  - No adverse event [Recovered/Resolved]
  - Exposure during pregnancy [Unknown]
  - Medication error [Unknown]
